FAERS Safety Report 19075198 (Version 2)
Quarter: 2021Q4

REPORT INFORMATION
  Report Type: Spontaneous
  Country: US (occurrence: US)
  Receive Date: 20210330
  Receipt Date: 20211025
  Transmission Date: 20220303
  Serious: Yes (Hospitalization)
  Sender: FDA-Public Use
  Company Number: US-ELI_LILLY_AND_COMPANY-US202103011803

PATIENT
  Age: 82 Year
  Sex: Male
  Weight: 80.3 kg

DRUGS (12)
  1. BAMLANIVIMAB [Suspect]
     Active Substance: BAMLANIVIMAB
     Indication: COVID-19
     Dosage: 700 MG, SINGLE
     Route: 042
     Dates: start: 20210105, end: 20210105
  2. CYCLOPHOSPHAMIDE [Suspect]
     Active Substance: CYCLOPHOSPHAMIDE
     Indication: B-cell lymphoma
     Dosage: 609 MG, DAILY
     Route: 042
     Dates: start: 20201229, end: 20201231
  3. FLUDARABINE [Suspect]
     Active Substance: FLUDARABINE PHOSPHATE
     Indication: B-cell lymphoma
     Dosage: 60.9 MG, DAILY
     Route: 042
     Dates: start: 20201229, end: 20201231
  4. PENTAMIDINE [Concomitant]
     Active Substance: PENTAMIDINE
     Indication: Antifungal prophylaxis
     Dosage: 300 MG, SINGLE
     Route: 055
  5. ALBUTEROL [Concomitant]
     Active Substance: ALBUTEROL
     Indication: Antifungal prophylaxis
     Dosage: 90 MG, SINGLE
     Route: 055
  6. MIDAZOLAM [Concomitant]
     Active Substance: MIDAZOLAM
     Indication: Premedication
     Dosage: 5 MG, DAILY
     Route: 042
     Dates: start: 20201221, end: 20201221
  7. LIDOCAINE [Concomitant]
     Active Substance: LIDOCAINE
     Indication: Premedication
     Dosage: 10 ML, DAILY
     Route: 058
     Dates: start: 20201221, end: 20201221
  8. FENTANYL [Concomitant]
     Active Substance: FENTANYL
     Indication: Pain prophylaxis
     Dosage: 25 UG, DAILY
     Route: 042
     Dates: start: 20201221, end: 20201221
  9. ENOXAPARIN [Concomitant]
     Active Substance: ENOXAPARIN
     Indication: Thrombosis prophylaxis
     Dosage: 40 MG, DAILY
     Route: 058
     Dates: start: 20210106, end: 20210108
  10. ACETAMINOPHEN [Concomitant]
     Active Substance: ACETAMINOPHEN
     Indication: Pain prophylaxis
     Dosage: UNK, PRN
     Route: 048
     Dates: start: 20210106, end: 20210108
  11. IMMUNE GLOBULIN NOS [Concomitant]
     Active Substance: IMMUNE GLOBULIN NOS
     Indication: Blood immunoglobulin G decreased
     Dosage: UNK, SINGLE
     Route: 042
     Dates: start: 20210107, end: 20210107
  12. ALTEPLASE [Concomitant]
     Active Substance: ALTEPLASE
     Indication: Catheter management
     Dosage: UNK, SINGLE
     Route: 065
     Dates: start: 20210108, end: 20210108

REACTIONS (5)
  - Vomiting [Unknown]
  - Pyrexia [Unknown]
  - Somnolence [Unknown]
  - Confusional state [Unknown]
  - COVID-19 pneumonia [Recovered/Resolved]

NARRATIVE: CASE EVENT DATE: 20210105
